FAERS Safety Report 4337257-1 (Version None)
Quarter: 2004Q2

REPORT INFORMATION
  Report Type: 
  Country: None (occurrence: None)
  Receive Date: 20040407
  Receipt Date: 20040105
  Transmission Date: 20050107
  Serious: Yes (Hospitalization)
  Sender: FDA-Public Use
  Company Number: ESP-BUS-155

PATIENT
  Age: 26 Year
  Sex: Male

DRUGS (9)
  1. BUSULFEX [Suspect]
     Dosage: 4900 MG DAILY IV
     Route: 042
     Dates: start: 20031101, end: 20031102
  2. ETANERCEPT [Suspect]
     Indication: GRAFT VERSUS HOST DISEASE
  3. CYCLOPHOSPHAMIDE [Suspect]
     Dosage: 02 MG DAILY ORAL
     Route: 048
     Dates: start: 20031028, end: 20031031
  4. BENZYL PEROXIDE [Concomitant]
  5. ANUSOL [Concomitant]
  6. CLOTRIMAZOLE [Concomitant]
  7. CIPROFLOXACIN [Concomitant]
  8. DIPHENHYDRAMINE HCL [Concomitant]
  9. VANCOMYCIN [Concomitant]

REACTIONS (1)
  - BUNDLE BRANCH BLOCK LEFT [None]
